FAERS Safety Report 12467599 (Version 1)
Quarter: 2016Q2

REPORT INFORMATION
  Report Type: Spontaneous
  Country: GB (occurrence: GB)
  Receive Date: 20160615
  Receipt Date: 20160615
  Transmission Date: 20160815
  Serious: Yes (Other)
  Sender: FDA-Public Use
  Company Number: GB-AMGEN-GBRSP2016074703

PATIENT
  Age: 48 Year
  Sex: Female

DRUGS (9)
  1. EXEMESTANE. [Concomitant]
     Active Substance: EXEMESTANE
  2. ZOLEDRONIC ACID [Concomitant]
     Active Substance: ZOLEDRONIC ACID
  3. TAMOXIFEN [Concomitant]
     Active Substance: TAMOXIFEN
  4. PACLITAXEL. [Suspect]
     Active Substance: PACLITAXEL
     Indication: PRODUCT USED FOR UNKNOWN INDICATION
     Dosage: UNK, QWK
     Route: 065
  5. EVEROLIMUS [Concomitant]
     Active Substance: EVEROLIMUS
  6. PROLIA [Suspect]
     Active Substance: DENOSUMAB
     Indication: PRODUCT USED FOR UNKNOWN INDICATION
     Dosage: UNK
     Route: 065
  7. ZOLADEX [Concomitant]
     Active Substance: GOSERELIN ACETATE
  8. LETROZOLE. [Concomitant]
     Active Substance: LETROZOLE
  9. CAPECITABINE. [Concomitant]
     Active Substance: CAPECITABINE

REACTIONS (10)
  - Pleural effusion [Unknown]
  - Bone disorder [Unknown]
  - Pneumonitis [Unknown]
  - Breast cancer female [Unknown]
  - Metastases to lymph nodes [Unknown]
  - Lymphadenopathy mediastinal [Unknown]
  - Pericardial effusion [Unknown]
  - Metastases to bone [Unknown]
  - Disease progression [Unknown]
  - Cough [Unknown]

NARRATIVE: CASE EVENT DATE: 201302
